FAERS Safety Report 13909883 (Version 1)
Quarter: 2017Q3

REPORT INFORMATION
  Report Type: Spontaneous
  Country: US (occurrence: US)
  Receive Date: 20170828
  Receipt Date: 20170828
  Transmission Date: 20171127
  Serious: No
  Sender: FDA-Public Use
  Company Number: US-ENDO PHARMACEUTICALS INC-2016-006457

PATIENT
  Sex: Female
  Weight: 52.16 kg

DRUGS (9)
  1. PREDNISONE TABLETS 10MG [Suspect]
     Active Substance: PREDNISONE
     Dosage: 10 MG, UNKNOWN
     Route: 048
  2. PREDNISONE TABLETS 10MG [Suspect]
     Active Substance: PREDNISONE
     Dosage: 10 MG, QID
     Route: 048
  3. PREDNISONE TABLETS [Suspect]
     Active Substance: PREDNISONE
     Indication: PRODUCT USED FOR UNKNOWN INDICATION
     Dosage: 1 TABLET BY MOUTH DAILY
     Route: 048
  4. ASPIRINE [Concomitant]
     Active Substance: ASPIRIN
     Indication: OROPHARYNGEAL PAIN
  5. AMOXI-CLAV [Concomitant]
     Active Substance: AMOXICILLIN\CLAVULANATE POTASSIUM
     Indication: VIRAL UPPER RESPIRATORY TRACT INFECTION
     Dosage: UNK
  6. PREDNISONE TABLETS 10MG [Suspect]
     Active Substance: PREDNISONE
     Indication: PRODUCT USED FOR UNKNOWN INDICATION
     Dosage: 10 MG, UNKNOWN
     Route: 048
  7. PREDNISONE TABLETS 10MG [Suspect]
     Active Substance: PREDNISONE
     Dosage: 10 MG, TID
     Route: 048
  8. EPINEPHRINE. [Suspect]
     Active Substance: EPINEPHRINE
     Indication: PRODUCT USED FOR UNKNOWN INDICATION
     Dosage: UNK UNK, UNKNOWN
     Route: 065
  9. ASPIRINE [Concomitant]
     Active Substance: ASPIRIN
     Indication: VIRAL UPPER RESPIRATORY TRACT INFECTION

REACTIONS (3)
  - Insomnia [Unknown]
  - Emotional distress [Unknown]
  - Nervousness [Unknown]
